FAERS Safety Report 4904940-6 (Version None)
Quarter: 2006Q1

REPORT INFORMATION
  Report Type: 
  Country: None (occurrence: None)
  Receive Date: 20060208
  Receipt Date: 20051025
  Transmission Date: 20060701
  Serious: No
  Sender: FDA-Public Use
  Company Number: US-GLAXOSMITHKLINE-A0579557A

PATIENT
  Age: 58 Year
  Sex: Female

DRUGS (10)
  1. PAXIL [Suspect]
     Indication: PAIN
     Dosage: 40MG PER DAY
     Route: 048
     Dates: start: 19980101, end: 20050901
  2. FIORICET [Concomitant]
  3. CLONIDINE [Concomitant]
  4. PLAVIX [Concomitant]
  5. INDERAL [Concomitant]
  6. BENTYL [Concomitant]
  7. PROCHLORPERAZINE [Concomitant]
  8. TESSALON [Concomitant]
  9. SINGULAIR [Concomitant]
  10. DARVOCET-N 100 [Concomitant]

REACTIONS (4)
  - CHEST PAIN [None]
  - SOMNOLENCE [None]
  - SYNCOPE [None]
  - THERAPEUTIC RESPONSE UNEXPECTED [None]
